FAERS Safety Report 10257264 (Version 1)
Quarter: 2014Q2

REPORT INFORMATION
  Report Type: Spontaneous
  Country: US (occurrence: US)
  Receive Date: 20140625
  Receipt Date: 20140625
  Transmission Date: 20141212
  Serious: No
  Sender: FDA-Public Use
  Company Number: US-AMGEN-USASP2014047485

PATIENT
  Age: 75 Year
  Sex: Female
  Weight: 77.1 kg

DRUGS (4)
  1. ENBREL [Suspect]
     Indication: PRODUCT USED FOR UNKNOWN INDICATION
     Dosage: 25 MG, 2 TIMES/WK
     Route: 058
  2. CENTRUM                            /02217401/ [Concomitant]
     Dosage: UNK
     Route: 048
  3. TRILIPIX [Concomitant]
     Dosage: 45 MG, UNK
     Route: 048
  4. EXFORGE [Concomitant]
     Dosage: 160 MG, UNK
     Route: 048

REACTIONS (1)
  - Blood glucose increased [Unknown]
